FAERS Safety Report 14999833 (Version 1)
Quarter: 2018Q2

REPORT INFORMATION
  Report Type: Spontaneous
  Country: US (occurrence: US)
  Receive Date: 20180523
  Receipt Date: 20180523
  Transmission Date: 20180711
  Serious: No
  Sender: FDA-Public Use
  Company Number: None

PATIENT
  Age: 19 Year
  Sex: Female
  Weight: 91.28 kg

DRUGS (1)
  1. ULTRAVIST [Suspect]
     Active Substance: IOPROMIDE
     Indication: SCAN WITH CONTRAST
     Dosage: ?          OTHER FREQUENCY:ONE-TIME;?
     Route: 042
     Dates: start: 20180213, end: 20180213

REACTIONS (1)
  - Urticaria [None]

NARRATIVE: CASE EVENT DATE: 20180213
